APPROVED DRUG PRODUCT: ABACAVIR SULFATE AND LAMIVUDINE
Active Ingredient: ABACAVIR SULFATE; LAMIVUDINE
Strength: EQ 600MG BASE;300MG
Dosage Form/Route: TABLET;ORAL
Application: A208990 | Product #001
Applicant: ZYDUS PHARMACEUTICALS USA INC
Approved: Nov 15, 2018 | RLD: No | RS: No | Type: DISCN